FAERS Safety Report 9644583 (Version 5)
Quarter: 2016Q4

REPORT INFORMATION
  Report Type: Report from Study
  Country: US (occurrence: US)
  Receive Date: 20131025
  Receipt Date: 20161122
  Transmission Date: 20170207
  Serious: Yes (Hospitalization, Other)
  Sender: FDA-Public Use
  Company Number: US-AMGEN-USASP2013075080

PATIENT
  Age: 55 Year
  Sex: Female

DRUGS (2)
  1. HUMIRA [Suspect]
     Active Substance: ADALIMUMAB
     Indication: PRODUCT USED FOR UNKNOWN INDICATION
     Dosage: UNK
     Route: 065
  2. ENBREL [Suspect]
     Active Substance: ETANERCEPT
     Indication: RHEUMATOID ARTHRITIS
     Dosage: 50 MG, QWK
     Route: 065
     Dates: start: 1998

REACTIONS (26)
  - Post procedural complication [Unknown]
  - Sensory loss [Not Recovered/Not Resolved]
  - Rheumatoid nodule [Unknown]
  - Asthenia [Unknown]
  - Surgery [Unknown]
  - Hand fracture [Unknown]
  - Arthritis [Not Recovered/Not Resolved]
  - Skin ulcer [Unknown]
  - Drug ineffective [Unknown]
  - Ankle fracture [Unknown]
  - Hypoaesthesia [Unknown]
  - Cough [Unknown]
  - Feeling abnormal [Unknown]
  - Insomnia [Unknown]
  - Sleep apnoea syndrome [Unknown]
  - Neuropathy peripheral [Unknown]
  - Pain [Unknown]
  - Panic attack [Unknown]
  - Dyspnoea [Unknown]
  - Fracture nonunion [Unknown]
  - Decreased appetite [Unknown]
  - Mobility decreased [Unknown]
  - Stress fracture [Recovered/Resolved]
  - Balance disorder [Not Recovered/Not Resolved]
  - Muscular weakness [Unknown]
  - Post-tussive vomiting [Unknown]

NARRATIVE: CASE EVENT DATE: 2011
